FAERS Safety Report 14884514 (Version 3)
Quarter: 2018Q4

REPORT INFORMATION
  Report Type: Spontaneous
  Country: JP (occurrence: JP)
  Receive Date: 20180511
  Receipt Date: 20181002
  Transmission Date: 20190204
  Serious: Yes (Hospitalization)
  Sender: FDA-Public Use
  Company Number: JP-EISAI MEDICAL RESEARCH-EC-2018-039698

PATIENT
  Sex: Male
  Weight: 56 kg

DRUGS (1)
  1. LENVIMA [Suspect]
     Active Substance: LENVATINIB
     Indication: HEPATOCELLULAR CARCINOMA
     Route: 048
     Dates: start: 20180424

REACTIONS (3)
  - Pyrexia [Not Recovered/Not Resolved]
  - Stomatitis [Unknown]
  - Hyperthyroidism [Unknown]

NARRATIVE: CASE EVENT DATE: 201805
